FAERS Safety Report 11772427 (Version 1)
Quarter: 2015Q4

REPORT INFORMATION
  Report Type: Spontaneous
  Country: US (occurrence: None)
  Receive Date: 20151123
  Receipt Date: 20151123
  Transmission Date: 20160304
  Serious: Yes (Life-Threatening)
  Sender: FDA-Public Use
  Company Number: None

PATIENT
  Sex: Female
  Weight: 66.86 kg

DRUGS (1)
  1. KINEVAC [Suspect]
     Active Substance: SINCALIDE
     Indication: GALLBLADDER DISORDER
     Route: 042
     Dates: start: 20151117

REACTIONS (2)
  - Supraventricular tachycardia [None]
  - Laryngospasm [None]

NARRATIVE: CASE EVENT DATE: 20151117
